FAERS Safety Report 5345458-9 (Version None)
Quarter: 2007Q2

REPORT INFORMATION
  Report Type: 
  Country: None (occurrence: None)
  Receive Date: 20070605
  Receipt Date: 20070525
  Transmission Date: 20071010
  Serious: No
  Sender: FDA-Public Use
  Company Number: FR-ELI_LILLY_AND_COMPANY-FR200704002622

PATIENT
  Age: 80 Year
  Sex: Female
  Weight: 50 kg

DRUGS (4)
  1. DEDROGYL [Concomitant]
     Indication: OSTEOPOROSIS
     Dosage: 10 GTT, UNK
     Route: 048
     Dates: start: 20070205
  2. OROCAL [Concomitant]
     Indication: OSTEOPOROSIS
     Dosage: 500 MG, 2/D
     Route: 048
     Dates: start: 20070205
  3. DAFALGAN [Concomitant]
     Indication: PAIN
     Dosage: 1 G, 3/D
     Route: 048
     Dates: start: 20070205
  4. FORTEO [Suspect]
     Indication: OSTEOPOROSIS
     Dosage: 20 UG, DAILY (1/D)
     Route: 058
     Dates: start: 20070208, end: 20070412

REACTIONS (4)
  - CONFUSIONAL STATE [None]
  - DIZZINESS [None]
  - FALL [None]
  - FATIGUE [None]
